FAERS Safety Report 22306143 (Version 1)
Quarter: 2023Q2

REPORT INFORMATION
  Report Type: Report from Study
  Country: CA (occurrence: CA)
  Receive Date: 20230511
  Receipt Date: 20230511
  Transmission Date: 20230721
  Serious: Yes (Other)
  Sender: FDA-Public Use
  Company Number: CA-JNJFOC-20230333873

PATIENT
  Age: 58 Year
  Sex: Female
  Weight: 61 kg

DRUGS (4)
  1. REMICADE [Suspect]
     Active Substance: INFLIXIMAB
     Indication: Crohn^s disease
     Route: 042
     Dates: start: 20170210
  2. REMICADE [Suspect]
     Active Substance: INFLIXIMAB
     Route: 042
  3. REMICADE [Suspect]
     Active Substance: INFLIXIMAB
     Dosage: DOSE INCREASED
     Route: 042
     Dates: start: 20230313
  4. REMICADE [Suspect]
     Active Substance: INFLIXIMAB
     Route: 042

REACTIONS (9)
  - Tooth fracture [Not Recovered/Not Resolved]
  - Drug ineffective [Unknown]
  - Gastrointestinal inflammation [Unknown]
  - Weight decreased [Unknown]
  - Nausea [Unknown]
  - Abdominal pain lower [Unknown]
  - Diarrhoea [Unknown]
  - Frequent bowel movements [Unknown]
  - Off label use [Unknown]

NARRATIVE: CASE EVENT DATE: 20230101
